FAERS Safety Report 5775076-X (Version None)
Quarter: 2008Q2

REPORT INFORMATION
  Report Type: 
  Country: None (occurrence: None)
  Receive Date: 20080616
  Receipt Date: 20080616
  Transmission Date: 20081010
  Serious: Yes (Other)
  Sender: FDA-Public Use
  Company Number: None

PATIENT
  Age: 33 Year
  Sex: Male
  Weight: 86.1834 kg

DRUGS (1)
  1. METHADON HCL TAB [Suspect]
     Indication: DRUG DEPENDENCE
     Dosage: 110 MG  7 DAYS A WEEK PO
     Route: 048
     Dates: start: 20070718, end: 20080615

REACTIONS (2)
  - DRUG WITHDRAWAL SYNDROME [None]
  - MALAISE [None]
